FAERS Safety Report 6393811-7 (Version None)
Quarter: 2009Q4

REPORT INFORMATION
  Report Type: 
  Country: None (occurrence: None)
  Receive Date: 20091008
  Receipt Date: 20090922
  Transmission Date: 20100525
  Serious: No
  Sender: FDA-Public Use
  Company Number: US-B.I. PHARMACEUTICALS,INC./RIDGEFIELD-2009-BP-11694BP

PATIENT
  Sex: Female

DRUGS (6)
  1. SPIRIVA [Suspect]
     Indication: CHRONIC OBSTRUCTIVE PULMONARY DISEASE
  2. SPIRIVA [Suspect]
     Indication: EMPHYSEMA
  3. SPIRIVA [Suspect]
     Indication: BRONCHITIS CHRONIC
  4. SPIRIVA [Suspect]
     Indication: ASTHMA
  5. SPIRIVA [Suspect]
     Indication: DYSPNOEA
  6. ALBUTEROL SULFATE AUTOHALER [Concomitant]
     Indication: DYSPNOEA

REACTIONS (1)
  - CATARACT [None]
